FAERS Safety Report 19191486 (Version 1)
Quarter: 2021Q2

REPORT INFORMATION
  Report Type: Spontaneous
  Country: US (occurrence: US)
  Receive Date: 20210429
  Receipt Date: 20210429
  Transmission Date: 20210717
  Serious: Yes (Other)
  Sender: FDA-Public Use
  Company Number: US-AUROBINDO-AUR-APL-2021-016373

PATIENT
  Age: 28 Year
  Sex: Female

DRUGS (11)
  1. TRAMETINIB [Concomitant]
     Active Substance: TRAMETINIB
     Indication: OVARIAN CANCER
     Dosage: UNK
     Route: 065
  2. GEMCITABINE. [Concomitant]
     Active Substance: GEMCITABINE
     Indication: CHEMOTHERAPY
     Dosage: UNK (SEVEN CYCLES)
     Route: 065
  3. MIRDAMETINIB. [Suspect]
     Active Substance: MIRDAMETINIB
     Indication: OVARIAN CANCER
     Dosage: 4 MILLIGRAM, TWO TIMES A DAY (FOR 3 WEEKS ON AND 1 WEEK OFF)
     Route: 048
  4. CARBOPLATIN. [Concomitant]
     Active Substance: CARBOPLATIN
     Dosage: UNK (SEVEN CYCLES)
     Route: 065
  5. MIRDAMETINIB. [Suspect]
     Active Substance: MIRDAMETINIB
     Dosage: UNK (1 YEAR)
     Route: 065
  6. CARBOPLATIN. [Concomitant]
     Active Substance: CARBOPLATIN
     Indication: CHEMOTHERAPY
     Dosage: UNK (SIX CYCLES)
     Route: 065
  7. PACLITAXEL. [Concomitant]
     Active Substance: PACLITAXEL
     Indication: CHEMOTHERAPY
     Dosage: UNK (SIX CYCLES)
     Route: 065
  8. DOXORUBICIN [Concomitant]
     Active Substance: DOXORUBICIN
     Indication: TUMOUR EXCISION
     Dosage: UNK (FIVE CYCLES)
     Route: 065
  9. TAMOXIFEN [Suspect]
     Active Substance: TAMOXIFEN
     Indication: OVARIAN CANCER
     Dosage: UNK
     Route: 065
  10. BEVACIZUMAB. [Concomitant]
     Active Substance: BEVACIZUMAB
     Indication: CHEMOTHERAPY
     Dosage: UNK (SEVEN CYCLES)
     Route: 065
  11. LETROZOLE. [Concomitant]
     Active Substance: LETROZOLE
     Indication: PRODUCT USED FOR UNKNOWN INDICATION
     Dosage: UNK
     Route: 065

REACTIONS (1)
  - Treatment failure [Unknown]
